FAERS Safety Report 5546932-2 (Version None)
Quarter: 2007Q4

REPORT INFORMATION
  Report Type: 
  Country: None (occurrence: None)
  Receive Date: 20071211
  Receipt Date: 20070216
  Transmission Date: 20080405
  Serious: No
  Sender: FDA-Public Use
  Company Number: US-AMGEN-KDL207156

PATIENT
  Sex: Male
  Weight: 92.6 kg

DRUGS (8)
  1. ENBREL [Suspect]
     Route: 058
     Dates: start: 20061017
  2. ARAVA [Concomitant]
     Dates: start: 20060101
  3. FOSAMAX [Concomitant]
     Route: 048
  4. LORTAB [Concomitant]
     Route: 048
  5. NAPROSYN [Concomitant]
     Route: 048
  6. OXYCONTIN [Concomitant]
     Route: 048
  7. PEPCID [Concomitant]
     Route: 048
  8. PREDNISONE [Concomitant]
     Route: 048

REACTIONS (4)
  - ARTHRALGIA [None]
  - EAR CANAL ERYTHEMA [None]
  - JAW DISORDER [None]
  - WEIGHT INCREASED [None]
